FAERS Safety Report 14712061 (Version 1)
Quarter: 2018Q2

REPORT INFORMATION
  Report Type: Spontaneous
  Country: US (occurrence: US)
  Receive Date: 20180404
  Receipt Date: 20180404
  Transmission Date: 20180711
  Serious: No
  Sender: FDA-Public Use
  Company Number: US-SA-2017SA223030

PATIENT
  Age: 43 Year
  Sex: Male

DRUGS (1)
  1. ALLEGRA-D 24 HOUR [Suspect]
     Active Substance: FEXOFENADINE HYDROCHLORIDE\PSEUDOEPHEDRINE HYDROCHLORIDE
     Indication: DRUG HYPERSENSITIVITY
     Dosage: 180/240 MG
     Route: 048

REACTIONS (2)
  - Drug ineffective [Unknown]
  - Medication residue present [Not Recovered/Not Resolved]
